FAERS Safety Report 23156887 (Version 1)
Quarter: 2023Q4

REPORT INFORMATION
  Report Type: Spontaneous
  Country: FR (occurrence: FR)
  Receive Date: 20231108
  Receipt Date: 20231108
  Transmission Date: 20240109
  Serious: Yes (Other)
  Sender: FDA-Public Use
  Company Number: FR-AFSSAPS-RN2023001149

PATIENT
  Age: 89 Year
  Sex: Female
  Weight: 49 kg

DRUGS (1)
  1. AMOXICILLIN [Suspect]
     Active Substance: AMOXICILLIN
     Indication: Pyelonephritis
     Dosage: 6 DOSAGE FORM, ONCE A DAY (2 G?LULES 3 FOIS PAR JOUR)
     Route: 048
     Dates: start: 20231008, end: 20231012

REACTIONS (1)
  - Purpura [Not Recovered/Not Resolved]

NARRATIVE: CASE EVENT DATE: 20231012
